FAERS Safety Report 8492700-1 (Version None)
Quarter: 2012Q3

REPORT INFORMATION
  Report Type: 
  Country: None (occurrence: None)
  Receive Date: 20120706
  Receipt Date: 20120622
  Transmission Date: 20120928
  Serious: Yes (Other)
  Sender: FDA-Public Use
  Company Number: JP-MYLANLABS-2012S1012961

PATIENT
  Age: 70 Year
  Sex: Female

DRUGS (1)
  1. PHENYTOIN [Suspect]
     Route: 065

REACTIONS (3)
  - INFECTION REACTIVATION [None]
  - DRUG RASH WITH EOSINOPHILIA AND SYSTEMIC SYMPTOMS [None]
  - HERPES ZOSTER [None]
